FAERS Safety Report 9394166 (Version 1)
Quarter: 2013Q3

REPORT INFORMATION
  Report Type: Report from Study
  Country: MX (occurrence: MX)
  Receive Date: 20130710
  Receipt Date: 20130710
  Transmission Date: 20140515
  Serious: Yes (Other)
  Sender: FDA-Public Use
  Company Number: MX-ROCHE-1246564

PATIENT
  Sex: Female

DRUGS (1)
  1. XELODA [Suspect]
     Indication: BREAST CANCER
     Dosage: DURING 14 DAYS BY 7 DAYS REST.
     Route: 048
     Dates: start: 20120220

REACTIONS (2)
  - Fatigue [Not Recovered/Not Resolved]
  - Abasia [Not Recovered/Not Resolved]
